FAERS Safety Report 22223676 (Version 1)
Quarter: 2023Q2

REPORT INFORMATION
  Report Type: Spontaneous
  Country: US (occurrence: US)
  Receive Date: 20230418
  Receipt Date: 20230418
  Transmission Date: 20230722
  Serious: No
  Sender: FDA-Public Use
  Company Number: US-009507513-2304USA003002

PATIENT
  Age: 54 Year
  Sex: Male

DRUGS (6)
  1. CUBICIN [Suspect]
     Active Substance: DAPTOMYCIN
     Indication: Intervertebral discitis
     Dosage: UNK
     Dates: start: 2018
  2. CUBICIN [Suspect]
     Active Substance: DAPTOMYCIN
     Indication: Osteomyelitis
  3. CUBICIN [Suspect]
     Active Substance: DAPTOMYCIN
     Indication: Inflammation
  4. INVANZ [Suspect]
     Active Substance: ERTAPENEM SODIUM
     Indication: Intervertebral discitis
     Dosage: UNK
     Dates: start: 2018
  5. INVANZ [Suspect]
     Active Substance: ERTAPENEM SODIUM
     Indication: Osteomyelitis
  6. INVANZ [Suspect]
     Active Substance: ERTAPENEM SODIUM
     Indication: Inflammation

REACTIONS (1)
  - Product use in unapproved indication [Unknown]

NARRATIVE: CASE EVENT DATE: 20180101
